FAERS Safety Report 14162517 (Version 7)
Quarter: 2018Q1

REPORT INFORMATION
  Report Type: Spontaneous
  Country: US (occurrence: US)
  Receive Date: 20171106
  Receipt Date: 20180309
  Transmission Date: 20180508
  Serious: Yes (Hospitalization, Other)
  Sender: FDA-Public Use
  Company Number: US-TEVA-821934USA

PATIENT
  Age: 44 Year
  Sex: Female
  Weight: 85 kg

DRUGS (1)
  1. METRONIDAZOLE. [Suspect]
     Active Substance: METRONIDAZOLE
     Indication: OVARIAN ABSCESS
     Route: 065
     Dates: start: 201709, end: 20170929

REACTIONS (20)
  - Swollen tongue [Unknown]
  - Joint swelling [Not Recovered/Not Resolved]
  - Immune system disorder [Unknown]
  - Ovarian abscess [Recovered/Resolved]
  - Pharyngeal oedema [Unknown]
  - Weight decreased [Unknown]
  - Urticaria [Unknown]
  - Hypersensitivity [Unknown]
  - Eating disorder [Unknown]
  - Blood disorder [Unknown]
  - Food allergy [Unknown]
  - Pruritus [Not Recovered/Not Resolved]
  - Dysgeusia [Unknown]
  - Vulvovaginal swelling [Unknown]
  - Lip swelling [Unknown]
  - Gait disturbance [Unknown]
  - Hypertension [Unknown]
  - Fungal infection [Unknown]
  - Weight decreased [Unknown]
  - Swelling [Unknown]

NARRATIVE: CASE EVENT DATE: 2017
